FAERS Safety Report 21161075 (Version 1)
Quarter: 2022Q3

REPORT INFORMATION
  Report Type: Spontaneous
  Country: US (occurrence: US)
  Receive Date: 20220802
  Receipt Date: 20220802
  Transmission Date: 20221026
  Serious: Yes (Hospitalization, Other)
  Sender: FDA-Public Use
  Company Number: US-PFIZER INC-PV202200033966

PATIENT
  Sex: Male
  Weight: 15.102 kg

DRUGS (4)
  1. CAMPTOSAR [Suspect]
     Active Substance: IRINOTECAN HYDROCHLORIDE
     Dosage: UNK
  2. TEMOZOLOMIDE [Suspect]
     Active Substance: TEMOZOLOMIDE
     Dosage: UNK
  3. DINUTUXIMAB [Suspect]
     Active Substance: DINUTUXIMAB
     Dosage: UNK, CYCLIC
     Route: 041
  4. LEUKINE [Suspect]
     Active Substance: SARGRAMOSTIM
     Dosage: UNK

REACTIONS (5)
  - Thrombocytopenia [Unknown]
  - Hypokalaemia [Unknown]
  - Dehydration [Unknown]
  - COVID-19 [Unknown]
  - Hypertension [Unknown]

NARRATIVE: CASE EVENT DATE: 20220118
